FAERS Safety Report 22925471 (Version 2)
Quarter: 2023Q4

REPORT INFORMATION
  Report Type: Spontaneous
  Country: US (occurrence: None)
  Receive Date: 20230908
  Receipt Date: 20231016
  Transmission Date: 20240110
  Serious: No
  Sender: FDA-Public Use
  Company Number: 2023A204098

PATIENT
  Age: 27145 Day
  Sex: Female

DRUGS (1)
  1. SYMBICORT [Suspect]
     Active Substance: BUDESONIDE\FORMOTEROL FUMARATE DIHYDRATE
     Dosage: 160/4.5 MCG 120 INHALATIONS; UNKNOWN FREQUENCY UNKNOWN
     Route: 055

REACTIONS (5)
  - Stomatitis [Unknown]
  - Incorrect dose administered [Unknown]
  - Device use issue [Unknown]
  - Product taste abnormal [Unknown]
  - Device delivery system issue [Unknown]

NARRATIVE: CASE EVENT DATE: 20230903
